FAERS Safety Report 15710513 (Version 1)
Quarter: 2018Q4

REPORT INFORMATION
  Report Type: Report from Study
  Country: CA (occurrence: CA)
  Receive Date: 20181211
  Receipt Date: 20181211
  Transmission Date: 20190205
  Serious: Yes (Hospitalization)
  Sender: FDA-Public Use
  Company Number: CA-JNJFOC-20181205622

PATIENT
  Age: 47 Year
  Sex: Female
  Weight: 59.87 kg

DRUGS (1)
  1. SIMPONI [Suspect]
     Active Substance: GOLIMUMAB
     Indication: ANKYLOSING SPONDYLITIS
     Dosage: STRENGTH = 50 MG
     Route: 058
     Dates: start: 20180515, end: 20181015

REACTIONS (1)
  - Lymph gland infection [Not Recovered/Not Resolved]

NARRATIVE: CASE EVENT DATE: 20181031
